FAERS Safety Report 6876615-8 (Version None)
Quarter: 2010Q3

REPORT INFORMATION
  Report Type: 
  Country: None (occurrence: None)
  Receive Date: 20100727
  Receipt Date: 20100715
  Transmission Date: 20110219
  Serious: Yes (Other)
  Sender: FDA-Public Use
  Company Number: FR-WYE-H16290210

PATIENT
  Sex: Male

DRUGS (9)
  1. PANTOPRAZOLE SODIUM [Suspect]
     Dosage: UNKNOWN
     Dates: start: 20100525, end: 20100604
  2. KETOPROFEN [Suspect]
     Dosage: UNKNOWN
     Dates: start: 20100525, end: 20100604
  3. TOCO [Concomitant]
     Dosage: 500 MG, FREQUENCY NOT SPECIFIED
  4. LESCOL [Concomitant]
     Dosage: 80 MG, FREQUENCY NOT SPECIFIED
  5. PERSEAE OLEUM/SOYA OIL [Concomitant]
     Dosage: 300 MG, FREQUENCY NOT SPECIFIED
  6. APROVEL [Concomitant]
     Dosage: 150 MG, FREQUENCY NOT SPECIFIED
  7. ALLOPURINOL [Concomitant]
     Dosage: UNKNOWN
  8. XARELTO [Suspect]
     Route: 048
     Dates: start: 20100525, end: 20100616
  9. TAMSULOSIN HCL [Concomitant]
     Dosage: 0.4 MG, FREQUENCY NOT SPECIFIED

REACTIONS (10)
  - ALANINE AMINOTRANSFERASE INCREASED [None]
  - ASPARTATE AMINOTRANSFERASE INCREASED [None]
  - BACK PAIN [None]
  - BILIRUBIN CONJUGATED INCREASED [None]
  - BLOOD ALKALINE PHOSPHATASE INCREASED [None]
  - BLOOD BILIRUBIN INCREASED [None]
  - DIARRHOEA [None]
  - HEPATITIS [None]
  - JAUNDICE [None]
  - LIPASE INCREASED [None]
